FAERS Safety Report 18390360 (Version 1)
Quarter: 2020Q4

REPORT INFORMATION
  Report Type: Spontaneous
  Country: US (occurrence: US)
  Receive Date: 20201015
  Receipt Date: 20201015
  Transmission Date: 20210114
  Serious: No
  Sender: FDA-Public Use
  Company Number: US-ALLERGAN-2031484US

PATIENT
  Sex: Female

DRUGS (1)
  1. RECTIV [Suspect]
     Active Substance: NITROGLYCERIN
     Indication: PAIN
     Dosage: UNK

REACTIONS (3)
  - Application site hyperaesthesia [Unknown]
  - Application site pain [Unknown]
  - Product packaging issue [Unknown]
